FAERS Safety Report 9892110 (Version 1)
Quarter: 2014Q1

REPORT INFORMATION
  Report Type: Spontaneous
  Country: MX (occurrence: MX)
  Receive Date: 20140212
  Receipt Date: 20140212
  Transmission Date: 20141002
  Serious: Yes (Hospitalization, Disabling, Other)
  Sender: FDA-Public Use
  Company Number: PHHY2014MX016776

PATIENT
  Age: 92 Year
  Sex: Female

DRUGS (4)
  1. ZOMETA [Suspect]
     Indication: PLASMA CELL MYELOMA
     Dosage: 1 DF, MONTHLY
     Route: 042
     Dates: end: 2011
  2. ZOMETA [Suspect]
     Indication: BONE CANCER
  3. MORPHINE [Concomitant]
     Dosage: 1 DF, CYCLIC
     Route: 058
  4. ERYTHROPOIETIN [Concomitant]
     Dosage: 2 DF, Q5H
     Route: 048

REACTIONS (6)
  - Femur fracture [Recovered/Resolved]
  - Mastication disorder [Not Recovered/Not Resolved]
  - Blindness [Not Recovered/Not Resolved]
  - Tooth loss [Recovered/Resolved]
  - Cataract [Not Recovered/Not Resolved]
  - Fall [Unknown]
